FAERS Safety Report 12854383 (Version 1)
Quarter: 2016Q4

REPORT INFORMATION
  Report Type: Spontaneous
  Country: US (occurrence: US)
  Receive Date: 20161017
  Receipt Date: 20161017
  Transmission Date: 20170207
  Serious: No
  Sender: FDA-Public Use
  Company Number: US-GALDERMA-US16005736

PATIENT
  Age: 39 Year
  Sex: Male

DRUGS (1)
  1. SOOLANTRA [Suspect]
     Active Substance: IVERMECTIN
     Indication: ROSACEA
     Dosage: 0.1%
     Route: 061
     Dates: start: 201602, end: 201606

REACTIONS (6)
  - Dermatitis contact [Not Recovered/Not Resolved]
  - Dermatitis [Not Recovered/Not Resolved]
  - Urticaria [Not Recovered/Not Resolved]
  - Inflammation [Not Recovered/Not Resolved]
  - Sebaceous glands overactivity [Not Recovered/Not Resolved]
  - Rosacea [Not Recovered/Not Resolved]

NARRATIVE: CASE EVENT DATE: 2016
